FAERS Safety Report 22280508 (Version 1)
Quarter: 2023Q2

REPORT INFORMATION
  Report Type: Report from Study
  Country: US (occurrence: US)
  Receive Date: 20230503
  Receipt Date: 20230503
  Transmission Date: 20230722
  Serious: Yes (Other)
  Sender: FDA-Public Use
  Company Number: US-BAUSCH-BL-2023-006509

PATIENT
  Age: 80 Year
  Sex: Female

DRUGS (3)
  1. UCERIS [Suspect]
     Active Substance: BUDESONIDE
     Indication: Colitis ulcerative
     Route: 054
     Dates: start: 202303
  2. STELARA [Concomitant]
     Active Substance: USTEKINUMAB
     Indication: Product used for unknown indication
  3. VITAMINS NOS [Concomitant]
     Active Substance: VITAMINS
     Indication: Product used for unknown indication

REACTIONS (5)
  - Rectal haemorrhage [Unknown]
  - Ill-defined disorder [Unknown]
  - Intentional dose omission [Unknown]
  - Liquid product physical issue [Unknown]
  - Product packaging difficult to open [Unknown]
